FAERS Safety Report 7262155-3 (Version None)
Quarter: 2011Q1

REPORT INFORMATION
  Report Type: 
  Country: None (occurrence: None)
  Receive Date: 20110130
  Receipt Date: 20101210
  Transmission Date: 20110831
  Serious: No
  Sender: FDA-Public Use
  Company Number: US-ABBOTT-10P-163-0691585-00

PATIENT
  Age: 25 Year
  Sex: Female

DRUGS (5)
  1. ALPRAZOLAM [Concomitant]
     Indication: ANXIETY
  2. HUMIRA [Suspect]
     Indication: CROHN'S DISEASE
     Route: 058
     Dates: start: 20101202, end: 20101202
  3. HUMIRA [Suspect]
     Dosage: 2ND LOADING DOSE 16 DEC, THEN 40MG Q2W
     Route: 058
  4. AMITRIPTYLINE HCL [Concomitant]
     Indication: PAIN
  5. OTHER UNKNOWN MEDICATIONS [Concomitant]
     Indication: PRODUCT USED FOR UNKNOWN INDICATION

REACTIONS (2)
  - PAIN [None]
  - NEPHROLITHIASIS [None]
